FAERS Safety Report 4561514-7 (Version None)
Quarter: 2005Q1

REPORT INFORMATION
  Report Type: 
  Country: None (occurrence: None)
  Receive Date: 20050126
  Receipt Date: 20050119
  Transmission Date: 20050727
  Serious: Yes (Death, Other)
  Sender: FDA-Public Use
  Company Number: PHRM2005FR00583

PATIENT
  Age: 80 Year
  Sex: Female

DRUGS (2)
  1. CHEMOTHERAPEUTICS,OTHER [Concomitant]
     Indication: BREAST CANCER
  2. ZOMETA [Suspect]
     Indication: BREAST CANCER
     Route: 042

REACTIONS (2)
  - CARDIAC DISORDER [None]
  - OSTEONECROSIS [None]
